FAERS Safety Report 4962615-1 (Version None)
Quarter: 2006Q1

REPORT INFORMATION
  Report Type: 
  Country: None (occurrence: None)
  Receive Date: 20060201
  Receipt Date: 20051107
  Transmission Date: 20060701
  Serious: No
  Sender: FDA-Public Use
  Company Number: 2005PV004068

PATIENT
  Age: 64 Year
  Sex: Male

DRUGS (3)
  1. BYETTA [Suspect]
     Indication: DIABETES MELLITUS NON-INSULIN-DEPENDENT
     Dosage: 10 MCG; BID; SC; 5 MCG; SC
     Route: 058
     Dates: start: 20051020, end: 20051030
  2. BYETTA [Suspect]
     Indication: DIABETES MELLITUS NON-INSULIN-DEPENDENT
     Dosage: 10 MCG; BID; SC; 5 MCG; SC
     Route: 058
     Dates: start: 20051031
  3. AVANDAMET [Concomitant]

REACTIONS (3)
  - INJECTION SITE NODULE [None]
  - NAUSEA [None]
  - WEIGHT DECREASED [None]
